FAERS Safety Report 17478187 (Version 1)
Quarter: 2020Q1

REPORT INFORMATION
  Report Type: Report from Study
  Country: US (occurrence: US)
  Receive Date: 20200228
  Receipt Date: 20200228
  Transmission Date: 20200409
  Serious: Yes (Hospitalization)
  Sender: FDA-Public Use
  Company Number: US-BAYER-2020-032830

PATIENT
  Age: 88 Year
  Sex: Male

DRUGS (4)
  1. STIVARGA [Suspect]
     Active Substance: REGORAFENIB
     Indication: PRODUCT USED FOR UNKNOWN INDICATION
     Dosage: 80 MG, QD FOR 21 DAYS AND 1 WEEK OFF
     Dates: start: 20200201, end: 20200221
  2. VELCADE [Concomitant]
     Active Substance: BORTEZOMIB
     Dosage: UNK
  3. REVLIMID [Concomitant]
     Active Substance: LENALIDOMIDE
     Dosage: UNK
  4. VIAGRA [Concomitant]
     Active Substance: SILDENAFIL CITRATE
     Dosage: UNK

REACTIONS (3)
  - Adverse drug reaction [Not Recovered/Not Resolved]
  - Off label use [None]
  - Obstruction [Not Recovered/Not Resolved]

NARRATIVE: CASE EVENT DATE: 20200201
